FAERS Safety Report 8884640 (Version 1)
Quarter: 2012Q4

REPORT INFORMATION
  Report Type: 
  Country: CH (occurrence: CH)
  Receive Date: 20121102
  Receipt Date: 20121102
  Transmission Date: 20130627
  Serious: Yes (Other)
  Sender: FDA-Public Use
  Company Number: CH-JNJFOC-20121016002

PATIENT
  Age: 41 Year
  Sex: Male

DRUGS (14)
  1. TACROLIMUS SYSTEMIC [Suspect]
     Indication: RENAL TRANSPLANT
     Route: 065
  2. TACROLIMUS SYSTEMIC [Suspect]
     Indication: RENAL TRANSPLANT
     Route: 065
  3. TACROLIMUS SYSTEMIC [Suspect]
     Indication: RENAL TRANSPLANT
     Route: 065
  4. TACROLIMUS SYSTEMIC [Suspect]
     Indication: RENAL TRANSPLANT
     Route: 065
  5. TACROLIMUS SYSTEMIC [Suspect]
     Indication: RENAL TRANSPLANT
     Route: 065
  6. TACROLIMUS SYSTEMIC [Suspect]
     Indication: RENAL TRANSPLANT
     Route: 065
  7. DARUNAVIR [Interacting]
     Indication: HIV INFECTION
     Route: 065
  8. TENOFOVIR [Suspect]
     Indication: HIV INFECTION
     Route: 065
  9. RITONAVIR [Suspect]
     Indication: HIV INFECTION
     Route: 065
  10. RALTEGRAVIR [Concomitant]
     Indication: HIV INFECTION
     Route: 065
  11. ETRAVIRINE [Concomitant]
     Indication: HIV INFECTION
     Route: 065
  12. PREDNISONE [Concomitant]
     Indication: IMMUNOSUPPRESSION
     Route: 048
  13. PREDNISONE [Concomitant]
     Indication: IMMUNOSUPPRESSION
     Route: 048
  14. MYCOPHENOLATE MOFETIL [Concomitant]
     Indication: IMMUNOSUPPRESSION
     Route: 065

REACTIONS (4)
  - Drug level increased [Recovered/Resolved]
  - Blood creatinine increased [Recovered/Resolved]
  - Drug interaction [Unknown]
  - Off label use [Unknown]
